FAERS Safety Report 7647735-5 (Version None)
Quarter: 2011Q3

REPORT INFORMATION
  Report Type: 
  Country: None (occurrence: None)
  Receive Date: 20110801
  Receipt Date: 20110801
  Transmission Date: 20111222
  Serious: Yes (Other)
  Sender: FDA-Public Use
  Company Number: None

PATIENT
  Age: 11 Year
  Sex: Male
  Weight: 56.699 kg

DRUGS (1)
  1. METHYLPHENIDATE [Suspect]
     Indication: ATTENTION DEFICIT/HYPERACTIVITY DISORDER
     Dosage: 36 MG
     Route: 048
     Dates: start: 20060601, end: 20110731

REACTIONS (4)
  - CRYING [None]
  - COLD SWEAT [None]
  - FATIGUE [None]
  - NAUSEA [None]
